FAERS Safety Report 5340875-5 (Version None)
Quarter: 2007Q2

REPORT INFORMATION
  Report Type: 
  Country: None (occurrence: None)
  Receive Date: 20070405
  Receipt Date: 20070130
  Transmission Date: 20071010
  Serious: No
  Sender: FDA-Public Use
  Company Number: US200702000555

PATIENT
  Age: 49 Year
  Sex: Female

DRUGS (4)
  1. CYMBALTA [Suspect]
     Indication: DEPRESSION
     Dosage: 60 MG
     Dates: start: 20060901, end: 20061201
  2. SINGULAIR [Concomitant]
  3. PREVACID [Concomitant]
  4. ALBUTEROL [Concomitant]

REACTIONS (2)
  - ALCOHOL USE [None]
  - WEIGHT INCREASED [None]
